FAERS Safety Report 9157184 (Version 1)
Quarter: 2013Q1

REPORT INFORMATION
  Report Type: Spontaneous
  Country: US (occurrence: None)
  Receive Date: 20130308
  Receipt Date: 20130308
  Transmission Date: 20140127
  Serious: No
  Sender: FDA-Public Use
  Company Number: None

PATIENT
  Age: 74 Year
  Sex: Male
  Weight: 71.22 kg

DRUGS (1)
  1. MULTAQ [Suspect]
     Indication: ATRIAL FIBRILLATION
     Dosage: 400 MG  BID  ORAL
     Route: 048
     Dates: start: 20130212, end: 20130217

REACTIONS (5)
  - Asthenia [None]
  - Fatigue [None]
  - Hyperhidrosis [None]
  - Tremor [None]
  - Palpitations [None]
